FAERS Safety Report 11701953 (Version 1)
Quarter: 2015Q4

REPORT INFORMATION
  Report Type: Spontaneous
  Country: US (occurrence: US)
  Receive Date: 20151105
  Receipt Date: 20151105
  Transmission Date: 20160304
  Serious: No
  Sender: FDA-Public Use
  Company Number: US-B.I. PHARMACEUTICALS,INC./RIDGEFIELD-2015-BI-59101BP

PATIENT
  Age: 47 Year
  Sex: Female

DRUGS (2)
  1. CATAPRES-TTS [Suspect]
     Active Substance: CLONIDINE
     Indication: HYPERTENSION
     Dosage: DOSE PER APPLICATION: 7.5 MG (0.3 MG / DAY); FORMULATION: PATCH
     Route: 055
     Dates: start: 201510
  2. SYNTHROID [Concomitant]
     Active Substance: LEVOTHYROXINE SODIUM
     Indication: HYPOTHYROIDISM
     Dosage: 88 MCG
     Route: 048
     Dates: start: 2012

REACTIONS (1)
  - Dizziness [Not Recovered/Not Resolved]

NARRATIVE: CASE EVENT DATE: 201510
